FAERS Safety Report 24631172 (Version 1)
Quarter: 2024Q4

REPORT INFORMATION
  Report Type: Spontaneous
  Country: US (occurrence: US)
  Receive Date: 20241118
  Receipt Date: 20241118
  Transmission Date: 20250115
  Serious: No
  Sender: VIIV
  Company Number: US-VIIV HEALTHCARE-US2024138952

PATIENT
  Sex: Female

DRUGS (1)
  1. DOVATO [Suspect]
     Active Substance: DOLUTEGRAVIR SODIUM\LAMIVUDINE
     Indication: HIV test positive
     Dosage: UNK TAKES 1 50-300MG BEFORE BED
     Dates: end: 20241106

REACTIONS (2)
  - Dysphonia [Not Recovered/Not Resolved]
  - Aphonia [Unknown]
